FAERS Safety Report 6606487-8 (Version None)
Quarter: 2010Q1

REPORT INFORMATION
  Report Type: 
  Country: None (occurrence: None)
  Receive Date: 20100226
  Receipt Date: 20100219
  Transmission Date: 20100710
  Serious: Yes (Other)
  Sender: FDA-Public Use
  Company Number: PHHY2010FR10113

PATIENT
  Sex: Female

DRUGS (4)
  1. RASILEZ [Suspect]
     Dosage: 150 MG
     Dates: start: 20091210, end: 20091220
  2. CELECTOL [Concomitant]
     Dosage: UNK
  3. ESIDRIX [Concomitant]
     Dosage: UNK
     Dates: end: 20091226
  4. TAHOR [Concomitant]
     Dosage: UNK
     Dates: end: 20091226

REACTIONS (13)
  - ACUTE FEBRILE NEUTROPHILIC DERMATOSIS [None]
  - ANAEMIA [None]
  - ARTHRALGIA [None]
  - BACTERAEMIA [None]
  - CHILLS [None]
  - INFLAMMATION [None]
  - LYMPHOPENIA [None]
  - PRURITUS [None]
  - PYREXIA [None]
  - RASH MACULO-PAPULAR [None]
  - RENAL FAILURE [None]
  - THROMBOCYTOSIS [None]
  - TOXIC SKIN ERUPTION [None]
